FAERS Safety Report 25493927 (Version 1)
Quarter: 2025Q2

REPORT INFORMATION
  Report Type: Spontaneous
  Country: US (occurrence: None)
  Receive Date: 20250627
  Receipt Date: 20250627
  Transmission Date: 20250717
  Serious: Yes (Hospitalization)
  Sender: FDA-CTU
  Company Number: None

PATIENT
  Age: 55 Year
  Sex: Male

DRUGS (14)
  1. ADEMPAS [Suspect]
     Active Substance: RIOCIGUAT
     Indication: Pulmonary hypertension
     Dosage: FREQUENCY : 3 TIMES A DAY;?
     Route: 048
     Dates: start: 20210702
  2. OPSUMIT [Concomitant]
     Active Substance: MACITENTAN
  3. SELEXIPAG [Concomitant]
     Active Substance: SELEXIPAG
  4. RISPERIDONE [Concomitant]
     Active Substance: RISPERIDONE
  5. SUBOXONE [Concomitant]
     Active Substance: BUPRENORPHINE HYDROCHLORIDE\NALOXONE HYDROCHLORIDE
  6. DIAZEPAM [Concomitant]
     Active Substance: DIAZEPAM
  7. DULOXETINE [Concomitant]
     Active Substance: DULOXETINE
  8. LITHIUM CARBONATE [Concomitant]
     Active Substance: LITHIUM CARBONATE
  9. LAMOTRIGINE [Concomitant]
     Active Substance: LAMOTRIGINE
  10. WARFARIN [Concomitant]
     Active Substance: WARFARIN
  11. TORSEMIDE [Concomitant]
     Active Substance: TORSEMIDE
  12. SPIRONOLACTONE [Concomitant]
     Active Substance: SPIRONOLACTONE
  13. WINREVAIR [Suspect]
     Active Substance: SOTATERCEPT-CSRK
  14. NARCAN [Concomitant]
     Active Substance: NALOXONE HYDROCHLORIDE

REACTIONS (3)
  - Erythema [None]
  - Peripheral swelling [None]
  - Cellulitis [None]

NARRATIVE: CASE EVENT DATE: 20250507
